FAERS Safety Report 7551870-X (Version None)
Quarter: 2011Q2

REPORT INFORMATION
  Report Type: 
  Country: None (occurrence: None)
  Receive Date: 20110616
  Receipt Date: 20110613
  Transmission Date: 20111010
  Serious: Yes (Death, Other)
  Sender: FDA-Public Use
  Company Number: PHHY2011GB51517

PATIENT
  Age: 82 Year
  Sex: Male

DRUGS (1)
  1. METFORMIN HCL [Suspect]
     Dosage: UNK
     Route: 048
     Dates: start: 20110309

REACTIONS (5)
  - VOMITING [None]
  - DIARRHOEA [None]
  - DEHYDRATION [None]
  - RENAL FAILURE [None]
  - LACTIC ACIDOSIS [None]
